FAERS Safety Report 5723365-7 (Version None)
Quarter: 2008Q2

REPORT INFORMATION
  Report Type: 
  Country: None (occurrence: None)
  Receive Date: 20080430
  Receipt Date: 20080319
  Transmission Date: 20081010
  Serious: No
  Sender: FDA-Public Use
  Company Number: US-BAYER-200818058NA

PATIENT
  Sex: Female

DRUGS (1)
  1. MAGNEVIST PHARMACY BULK PACKAGE 100 ML VIAL [Suspect]
     Indication: NUCLEAR MAGNETIC RESONANCE IMAGING
     Dosage: TOTAL DAILY DOSE: 15 ML  UNIT DOSE: 100 ML
     Route: 042
     Dates: start: 20080317, end: 20080317

REACTIONS (1)
  - EYE SWELLING [None]
